FAERS Safety Report 7032157-0 (Version None)
Quarter: 2010Q4

REPORT INFORMATION
  Report Type: 
  Country: None (occurrence: None)
  Receive Date: 20101007
  Receipt Date: 20101005
  Transmission Date: 20110411
  Serious: Yes (Hospitalization)
  Sender: FDA-Public Use
  Company Number: KR-BRISTOL-MYERS SQUIBB COMPANY-15288699

PATIENT
  Age: 47 Year
  Sex: Female
  Weight: 48 kg

DRUGS (15)
  1. CISPLATIN [Suspect]
     Indication: NON-SMALL CELL LUNG CANCER METASTATIC
     Dosage: 75MG/M2 ON DAY 1 EVERY 21 DAYS. REDUCED 25 PERCENT
     Route: 042
     Dates: start: 20100831
  2. PEMETREXED DISODIUM [Suspect]
     Indication: NON-SMALL CELL LUNG CANCER METASTATIC
     Dosage: VIAL:500MG/M2 ON DAY 1 EVERY 21 DAYS.
     Route: 042
     Dates: start: 20100831
  3. FOLIC ACID [Concomitant]
     Dates: start: 20100827
  4. VITAMIN B-12 [Concomitant]
     Dates: start: 20100831, end: 20100831
  5. DEXAMETHASONE [Concomitant]
     Dates: start: 20100830, end: 20100901
  6. METOCLOPRAMIDE [Concomitant]
     Indication: NAUSEA
     Dates: start: 20100807, end: 20100910
  7. METOCLOPRAMIDE [Concomitant]
     Indication: VOMITING
     Dates: start: 20100807, end: 20100910
  8. ONDANSETRON [Concomitant]
     Indication: NAUSEA
     Dates: start: 20100804, end: 20100913
  9. ONDANSETRON [Concomitant]
     Indication: VOMITING
     Dates: start: 20100804, end: 20100913
  10. TERAZOSIN HCL [Concomitant]
     Indication: DYSURIA
     Dates: start: 20100820, end: 20100915
  11. GABAPENTIN [Concomitant]
     Indication: NEURALGIA
     Dates: start: 20100823, end: 20100915
  12. OXYCODONE [Concomitant]
     Indication: PAIN
     Dates: start: 20100819
  13. ALGINIC ACID [Concomitant]
     Dates: start: 20100904, end: 20100910
  14. LORAZEPAM [Concomitant]
     Dates: start: 20100904, end: 20100908
  15. FAMOTIDINE [Concomitant]
     Dates: start: 20100903, end: 20100905

REACTIONS (2)
  - MALLORY-WEISS SYNDROME [None]
  - VOMITING [None]
